FAERS Safety Report 4512512-0 (Version None)
Quarter: 2004Q4

REPORT INFORMATION
  Report Type: 
  Country: None (occurrence: None)
  Receive Date: 20041124
  Receipt Date: 20041110
  Transmission Date: 20050328
  Serious: Yes (Disabling)
  Sender: FDA-Public Use
  Company Number: USA040361555

PATIENT
  Age: 58 Year
  Sex: Male

DRUGS (4)
  1. CIALIS [Suspect]
     Dates: start: 20040212, end: 20040212
  2. GLUCOPHAGE [Concomitant]
  3. SINGULAIR (MONTEKUKAST SODIUM) [Concomitant]
  4. PREVACID [Concomitant]

REACTIONS (12)
  - AUDITORY RECRUITMENT [None]
  - BALANCE DISORDER [None]
  - DEAFNESS NEUROSENSORY [None]
  - DEAFNESS UNILATERAL [None]
  - FALL [None]
  - HYPERHIDROSIS [None]
  - IMPAIRED WORK ABILITY [None]
  - LABYRINTHITIS [None]
  - NAUSEA [None]
  - NYSTAGMUS [None]
  - TINNITUS [None]
  - VERTIGO [None]
